FAERS Safety Report 8117079-6 (Version None)
Quarter: 2012Q1

REPORT INFORMATION
  Report Type: 
  Country: None (occurrence: None)
  Receive Date: 20120206
  Receipt Date: 20120131
  Transmission Date: 20120608
  Serious: Yes (Hospitalization, Other)
  Sender: FDA-Public Use
  Company Number: DE-PFIZER INC-2012028555

PATIENT
  Age: 42 Year
  Sex: Female
  Weight: 56 kg

DRUGS (4)
  1. LEVOTHYROXINE SODIUM [Concomitant]
     Indication: HYPOTHYROIDISM
     Dosage: UNK
     Dates: start: 19960101
  2. ZYPREXA [Concomitant]
     Dosage: 5MG UP TO 10 MG DAILY
     Dates: start: 20110801, end: 20110901
  3. VENLAFAXINE HCL [Suspect]
     Indication: DEPRESSION
     Dosage: UP TO 300 MG PER DAY
     Dates: start: 20110801, end: 20111001
  4. MIRTAZAPINE [Concomitant]
     Dosage: 7.5 MG, DAILY
     Dates: start: 20110801, end: 20111001

REACTIONS (9)
  - GESTATIONAL DIABETES [None]
  - HAEMOGLOBIN DECREASED [None]
  - CARDIOVASCULAR DISORDER [None]
  - DEPRESSION [None]
  - RESPIRATORY TRACT INFECTION [None]
  - HAEMORRHAGE [None]
  - VOMITING [None]
  - DYSPNOEA [None]
  - PREMATURE RUPTURE OF MEMBRANES [None]
